FAERS Safety Report 9611231 (Version 1)
Quarter: 2013Q4

REPORT INFORMATION
  Report Type: Spontaneous
  Country: AU (occurrence: AU)
  Receive Date: 20131010
  Receipt Date: 20131010
  Transmission Date: 20140711
  Serious: Yes (Hospitalization, Other)
  Sender: FDA-Public Use
  Company Number: AU-MYLANLABS-2013S1021634

PATIENT
  Age: 8 Decade
  Sex: Male

DRUGS (6)
  1. DIABEX [Suspect]
     Indication: DIABETES MELLITUS
     Route: 048
     Dates: start: 201103, end: 20130905
  2. DIABEX [Suspect]
     Indication: DIABETES MELLITUS
     Route: 048
     Dates: start: 20130905
  3. GLICLAZIDE [Concomitant]
  4. MICARDIS [Concomitant]
  5. ROSUVASTATIN [Concomitant]
  6. NEXIUM [Concomitant]

REACTIONS (2)
  - Renal failure acute [Recovered/Resolved]
  - Renal impairment [Not Recovered/Not Resolved]
